FAERS Safety Report 13194981 (Version 1)
Quarter: 2017Q1

REPORT INFORMATION
  Report Type: Report from Study
  Country: GB (occurrence: GB)
  Receive Date: 20170207
  Receipt Date: 20170207
  Transmission Date: 20170428
  Serious: Yes (Other)
  Sender: FDA-Public Use
  Company Number: GB-GILEAD-2017-0256761

PATIENT
  Age: 51 Year
  Sex: Male

DRUGS (1)
  1. EMTRICITABINE/TENOFOVIR DISOPROXIL FUMARATE [Suspect]
     Active Substance: EMTRICITABINE\TENOFOVIR DISOPROXIL FUMARATE
     Indication: HIV INFECTION
     Dosage: 1 DF, QD
     Route: 048
     Dates: start: 2014

REACTIONS (6)
  - Blood cholesterol abnormal [Unknown]
  - Intervertebral disc disorder [Unknown]
  - Neck pain [Unknown]
  - Haematuria [Unknown]
  - Blood pressure abnormal [Unknown]
  - Colitis ulcerative [Unknown]
